FAERS Safety Report 4708193-3 (Version None)
Quarter: 2005Q3

REPORT INFORMATION
  Report Type: 
  Country: None (occurrence: None)
  Receive Date: 20050705
  Receipt Date: 20050705
  Transmission Date: 20060218
  Serious: Yes (Other)
  Sender: FDA-Public Use
  Company Number: None

PATIENT
  Age: 74 Year
  Sex: Female
  Weight: 100.6985 kg

DRUGS (1)
  1. ZOCOR [Suspect]
     Dosage: 40 MG QD PO
     Route: 048

REACTIONS (2)
  - PERIORBITAL DISORDER [None]
  - RASH [None]
